FAERS Safety Report 14521014 (Version 2)
Quarter: 2018Q2

REPORT INFORMATION
  Report Type: Report from Study
  Country: JP (occurrence: JP)
  Receive Date: 20180212
  Receipt Date: 20180404
  Transmission Date: 20180711
  Serious: Yes (Other)
  Sender: FDA-Public Use
  Company Number: PHJP2017JP026100

PATIENT
  Age: 1 Year
  Sex: Female

DRUGS (25)
  1. ILARIS [Suspect]
     Active Substance: CANAKINUMAB
     Dosage: 34 MG, UNK
     Route: 058
     Dates: start: 20170425
  2. ILARIS [Suspect]
     Active Substance: CANAKINUMAB
     Dosage: 15 MG, UNK
     Route: 058
     Dates: start: 20170201
  3. PREVENAR [Concomitant]
     Active Substance: PNEUMOCOCCAL 7-VALENT CONJUGATE VACCINE (DIPHTHERIA CRM197 PROTEIN)
     Indication: PRODUCT USED FOR UNKNOWN INDICATION
     Dosage: UNK
     Route: 065
     Dates: start: 20170201
  4. ILARIS [Suspect]
     Active Substance: CANAKINUMAB
     Dosage: 45 MG, UNK
     Route: 058
     Dates: start: 20171011
  5. PREVENAR [Concomitant]
     Active Substance: PNEUMOCOCCAL 7-VALENT CONJUGATE VACCINE (DIPHTHERIA CRM197 PROTEIN)
     Dosage: UNK
     Route: 065
     Dates: start: 20170524
  6. ELENTAL-P [Concomitant]
     Active Substance: AMINO ACIDS\CARBOHYDRATES\MINERALS\SOYBEAN OIL\VITAMINS
     Indication: HYPER IGD SYNDROME
     Dosage: UNK
     Route: 048
  7. PREDONINE [Concomitant]
     Active Substance: PREDNISOLONE
     Dosage: 3 MG, UNK
     Route: 065
     Dates: start: 20170125, end: 20170126
  8. ILARIS [Suspect]
     Active Substance: CANAKINUMAB
     Dosage: 34 MG, UNK
     Route: 058
     Dates: start: 20170524
  9. ILARIS [Suspect]
     Active Substance: CANAKINUMAB
     Dosage: 40 MG, UNK
     Route: 058
     Dates: start: 20170816
  10. ILARIS [Suspect]
     Active Substance: CANAKINUMAB
     Dosage: 34 MG, UNK
     Route: 058
     Dates: start: 20170329
  11. PREDNISOLON [Concomitant]
     Active Substance: PREDNISOLONE
     Indication: HYPER IGD SYNDROME
     Dosage: 5 MG, UNK
     Route: 048
     Dates: start: 20170425
  12. PREDNISOLON [Concomitant]
     Active Substance: PREDNISOLONE
     Indication: HYPER IGD SYNDROME
     Dosage: UNK, PRN
     Route: 048
  13. ILARIS [Suspect]
     Active Substance: CANAKINUMAB
     Dosage: 36 MG, UNK
     Route: 058
     Dates: start: 20170719
  14. ILARIS [Suspect]
     Active Substance: CANAKINUMAB
     Dosage: 46 MG, UNK
     Route: 058
     Dates: start: 20171206
  15. QUATTROVAC [Concomitant]
     Dosage: UNK
     Route: 065
     Dates: start: 20170301
  16. ILARIS [Suspect]
     Active Substance: CANAKINUMAB
     Dosage: 36 MG, UNK
     Route: 058
     Dates: start: 20170621
  17. ILARIS [Suspect]
     Active Substance: CANAKINUMAB
     Dosage: 43.5 MG, UNK
     Route: 058
     Dates: start: 20170913
  18. ILARIS [Suspect]
     Active Substance: CANAKINUMAB
     Dosage: 45 MG, UNK
     Route: 058
     Dates: start: 20171108
  19. QUATTROVAC [Concomitant]
     Indication: PRODUCT USED FOR UNKNOWN INDICATION
     Dosage: UNK
     Route: 065
     Dates: start: 20170104
  20. ALPINY [Concomitant]
     Active Substance: ACETAMINOPHEN
     Indication: HYPER IGD SYNDROME
     Dosage: UNK
     Route: 054
  21. ILARIS [Suspect]
     Active Substance: CANAKINUMAB
     Indication: HYPER IGD SYNDROME
     Dosage: 15 MG, UNK
     Route: 058
     Dates: start: 20170104
  22. ILARIS [Suspect]
     Active Substance: CANAKINUMAB
     Dosage: 33 MG, UNK
     Route: 058
     Dates: start: 20170301
  23. ACTHIB [Concomitant]
     Active Substance: HAEMOPHILUS B CONJUGATE VACCINE (TETANUS TOXOID CONJUGATE)\HAEMOPHILUS INFLUENZAE TYPE B STRAIN 1482 CAPSULAR POLYSACCHARIDE TETANUS TOXOID CONJUGATE ANTIGEN
     Indication: PRODUCT USED FOR UNKNOWN INDICATION
     Dosage: UNK
     Route: 065
     Dates: start: 20170201
  24. INCREMIN [Concomitant]
     Active Substance: FERRIC PYROPHOSPHATE
     Indication: HYPER IGD SYNDROME
     Dosage: UNK
     Route: 048
  25. PREDONINE [Concomitant]
     Active Substance: PREDNISOLONE
     Indication: HYPER IGD SYNDROME
     Dosage: 6 MG, UNK
     Route: 065
     Dates: start: 20170121

REACTIONS (20)
  - Enteritis infectious [Recovered/Resolved]
  - Pyrexia [Recovering/Resolving]
  - Upper respiratory tract inflammation [Recovered/Resolved]
  - Cough [Unknown]
  - Rhinorrhoea [Recovering/Resolving]
  - Rhinorrhoea [Recovered/Resolved]
  - Ileus paralytic [Recovering/Resolving]
  - Vomiting [Recovered/Resolved]
  - Cough [Recovered/Resolved]
  - Hand-foot-and-mouth disease [Recovered/Resolved]
  - Pyrexia [Recovered/Resolved]
  - Nasopharyngitis [Recovered/Resolved]
  - Rhinorrhoea [Unknown]
  - Nasopharyngitis [Recovered/Resolved]
  - Pruritus [Recovered/Resolved]
  - Drug administered to patient of inappropriate age [Unknown]
  - Rhinorrhoea [Recovered/Resolved]
  - Vomiting [Unknown]
  - Nasopharyngitis [Recovering/Resolving]
  - Rash [Recovered/Resolved]

NARRATIVE: CASE EVENT DATE: 20170118
